FAERS Safety Report 24533126 (Version 1)
Quarter: 2024Q4

REPORT INFORMATION
  Report Type: Spontaneous
  Country: US (occurrence: US)
  Receive Date: 20241022
  Receipt Date: 20241022
  Transmission Date: 20250115
  Serious: No
  Sender: BAXTER
  Company Number: US-BAXTER-2024BAX025933

PATIENT
  Age: 31 Year
  Sex: Male

DRUGS (1)
  1. SODIUM CHLORIDE [Suspect]
     Active Substance: SODIUM CHLORIDE
     Dosage: INJECTION BAG
     Route: 048
     Dates: start: 20241003

REACTIONS (2)
  - Dysgeusia [Recovered/Resolved]
  - Incorrect route of product administration [Recovered/Resolved]

NARRATIVE: CASE EVENT DATE: 20241003
